FAERS Safety Report 11821837 (Version 1)
Quarter: 2015Q4

REPORT INFORMATION
  Report Type: Spontaneous
  Country: US (occurrence: US)
  Receive Date: 20151210
  Receipt Date: 20151210
  Transmission Date: 20160305
  Serious: No
  Sender: FDA-Public Use
  Company Number: US-JNJFOC-20150904688

PATIENT
  Sex: Female
  Weight: 43 kg

DRUGS (4)
  1. IMBRUVICA [Suspect]
     Active Substance: IBRUTINIB
     Indication: WALDENSTROM^S MACROGLOBULINAEMIA
     Route: 048
     Dates: start: 201505, end: 2015
  2. IMBRUVICA [Suspect]
     Active Substance: IBRUTINIB
     Indication: HYPERGAMMAGLOBULINAEMIA
     Route: 048
     Dates: start: 201505, end: 2015
  3. IMBRUVICA [Suspect]
     Active Substance: IBRUTINIB
     Indication: HYPERGAMMAGLOBULINAEMIA
     Route: 048
     Dates: start: 20150701, end: 20150803
  4. IMBRUVICA [Suspect]
     Active Substance: IBRUTINIB
     Indication: WALDENSTROM^S MACROGLOBULINAEMIA
     Route: 048
     Dates: start: 20150701, end: 20150803

REACTIONS (7)
  - Fatigue [Unknown]
  - Insomnia [Unknown]
  - Haemorrhage [Recovered/Resolved]
  - Pruritus [Unknown]
  - Haemoglobin decreased [Unknown]
  - Contusion [Unknown]
  - Salivary hypersecretion [Unknown]

NARRATIVE: CASE EVENT DATE: 2015
